FAERS Safety Report 16940410 (Version 2)
Quarter: 2019Q4

REPORT INFORMATION
  Report Type: Spontaneous
  Country: US (occurrence: US)
  Receive Date: 20191021
  Receipt Date: 20191216
  Transmission Date: 20200122
  Serious: Yes (Other)
  Sender: FDA-Public Use
  Company Number: US-ROCHE-2436488

PATIENT
  Age: 60 Year
  Sex: Female

DRUGS (2)
  1. XELODA [Suspect]
     Active Substance: CAPECITABINE
     Dosage: 1500
     Route: 048
     Dates: start: 20191024
  2. XELODA [Suspect]
     Active Substance: CAPECITABINE
     Indication: COLON CANCER
     Dosage: TAB 1500MG/1000MG
     Route: 048
     Dates: start: 201906, end: 20191008

REACTIONS (8)
  - Diarrhoea [Unknown]
  - Nasal ulcer [Unknown]
  - Mouth ulceration [Unknown]
  - Fatigue [Unknown]
  - Migraine [Unknown]
  - Nausea [Unknown]
  - Fall [Unknown]
  - Palmar-plantar erythrodysaesthesia syndrome [Unknown]

NARRATIVE: CASE EVENT DATE: 20191008
